FAERS Safety Report 15440237 (Version 5)
Quarter: 2019Q4

REPORT INFORMATION
  Report Type: Report from Study
  Country: FR (occurrence: FR)
  Receive Date: 20180928
  Receipt Date: 20191105
  Transmission Date: 20200122
  Serious: Yes (Death, Hospitalization, Other)
  Sender: FDA-Public Use
  Company Number: PHHY2018FR104528

PATIENT
  Age: 30 Year
  Sex: Female
  Weight: 50 kg

DRUGS (3)
  1. CYCLOPHOSPHAMIDE. [Concomitant]
     Active Substance: CYCLOPHOSPHAMIDE
     Indication: CHEMOTHERAPY
     Route: 065
  2. TISAGENLECLEUCEL. [Suspect]
     Active Substance: TISAGENLECLEUCEL
     Indication: DIFFUSE LARGE B-CELL LYMPHOMA
     Dosage: 2.4984X 108 CAR+ VIABLE T-CELLS
     Route: 042
     Dates: start: 20180907
  3. FLUDARABINE [Concomitant]
     Active Substance: FLUDARABINE PHOSPHATE
     Indication: CHEMOTHERAPY
     Route: 065

REACTIONS (36)
  - Fungal infection [Fatal]
  - Agitation [Unknown]
  - Anuria [Unknown]
  - Vasoplegia syndrome [Unknown]
  - Coagulopathy [Unknown]
  - Hyponatraemia [Unknown]
  - Cardio-respiratory arrest [Fatal]
  - Clonus [Unknown]
  - Respiratory distress [Unknown]
  - Multiple organ dysfunction syndrome [Fatal]
  - Pyrexia [Fatal]
  - Blood bilirubin unconjugated increased [Unknown]
  - Arrhythmia [Unknown]
  - Sepsis [Fatal]
  - Bone marrow failure [Unknown]
  - Seizure [Unknown]
  - Renal tubular necrosis [Unknown]
  - Lymphocytosis [Unknown]
  - Anaemia [Unknown]
  - Thrombocytopenia [Unknown]
  - Neutropenia [Unknown]
  - Encephalopathy [Unknown]
  - Hyperkalaemia [Unknown]
  - Human herpesvirus 6 infection [Unknown]
  - Diffuse large B-cell lymphoma [Fatal]
  - Lactic acidosis [Unknown]
  - Tumour lysis syndrome [Unknown]
  - Haemophagocytic lymphohistiocytosis [Fatal]
  - Cytokine release syndrome [Fatal]
  - Hypotension [Fatal]
  - Malignant neoplasm progression [Fatal]
  - Respiratory alkalosis [Unknown]
  - Hypocapnia [Unknown]
  - Gamma-glutamyltransferase increased [Unknown]
  - Candida infection [Fatal]
  - Acidosis [Unknown]

NARRATIVE: CASE EVENT DATE: 20180910
